FAERS Safety Report 8786551 (Version 1)
Quarter: 2012Q4

REPORT INFORMATION
  Report Type: 
  Country: TR (occurrence: TR)
  Receive Date: 20120914
  Receipt Date: 20120914
  Transmission Date: 20130627
  Serious: Yes (Other)
  Sender: FDA-Public Use
  Company Number: TR-009507513-1209TUR004422

PATIENT

DRUGS (2)
  1. SINGULAIR 10MG FILM TABLETS [Suspect]
     Dosage: 10 mg, qd
     Route: 048
     Dates: start: 2005, end: 2012
  2. DELIX (RAMIPRIL) [Concomitant]
     Dosage: 2.5 mg, qd
     Dates: start: 2009

REACTIONS (1)
  - Breast enlargement [Not Recovered/Not Resolved]
